FAERS Safety Report 7464258-7 (Version None)
Quarter: 2011Q2

REPORT INFORMATION
  Report Type: 
  Country: None (occurrence: None)
  Receive Date: 20110508
  Receipt Date: 20110423
  Transmission Date: 20111010
  Serious: No
  Sender: FDA-Public Use
  Company Number: US-ROXANE LABORATORIES, INC.-2011-RO-00578RO

PATIENT
  Sex: Female

DRUGS (1)
  1. ZOLPIDEM [Suspect]

REACTIONS (4)
  - NAUSEA [None]
  - VOMITING [None]
  - TREMOR [None]
  - DYSARTHRIA [None]
